FAERS Safety Report 4469766-9 (Version None)
Quarter: 2004Q4

REPORT INFORMATION
  Report Type: 
  Country: None (occurrence: None)
  Receive Date: 20041008
  Receipt Date: 20040910
  Transmission Date: 20050328
  Serious: Yes (Other)
  Sender: FDA-Public Use
  Company Number: FR-ROCHE-380278

PATIENT
  Age: 66 Year
  Sex: Female

DRUGS (4)
  1. PEGASYS [Suspect]
     Indication: HEPATITIS C
     Route: 058
  2. PEGASYS [Suspect]
     Route: 058
  3. PEGASYS [Suspect]
     Route: 058
  4. COPEGUS [Suspect]
     Indication: HEPATITIS C
     Route: 048

REACTIONS (3)
  - DEAFNESS UNILATERAL [None]
  - NEUTROPENIA [None]
  - TINNITUS [None]
